FAERS Safety Report 16175698 (Version 1)
Quarter: 2019Q2

REPORT INFORMATION
  Report Type: Spontaneous
  Country: GB (occurrence: GB)
  Receive Date: 20190409
  Receipt Date: 20190409
  Transmission Date: 20190711
  Serious: Yes (Hospitalization)
  Sender: FDA-Public Use
  Company Number: GB-ALLERGAN-1626720

PATIENT
  Sex: Male

DRUGS (2)
  1. ALCOHOL. [Suspect]
     Active Substance: ALCOHOL
     Indication: PRODUCT USED FOR UNKNOWN INDICATION
     Dosage: UNK, UNKNOWN
     Route: 065
  2. NITROGLYCERIN UNK [Suspect]
     Active Substance: NITROGLYCERIN
     Indication: ANGINA PECTORIS
     Dosage: UNK, QD (3 OR 4 TIMES DAILY)
     Route: 048

REACTIONS (4)
  - Hypotension [Unknown]
  - Product use in unapproved indication [Unknown]
  - Alcohol interaction [Unknown]
  - Inappropriate schedule of product administration [Unknown]
